FAERS Safety Report 20255797 (Version 1)
Quarter: 2021Q4

REPORT INFORMATION
  Report Type: Spontaneous
  Country: CN (occurrence: CN)
  Receive Date: 20211230
  Receipt Date: 20211230
  Transmission Date: 20220303
  Serious: Yes (Hospitalization, Other)
  Sender: FDA-Public Use
  Company Number: CN-GLAXOSMITHKLINE-CN2021APC263971

PATIENT
  Age: 21 Year
  Sex: Female
  Weight: 50 kg

DRUGS (2)
  1. LAMICTAL [Suspect]
     Active Substance: LAMOTRIGINE
     Indication: Affective disorder
     Dosage: 50 MG, QD
     Route: 048
     Dates: start: 20211029, end: 20211115
  2. VALPROATE SODIUM [Suspect]
     Active Substance: VALPROATE SODIUM
     Indication: Affective disorder
     Dosage: 0.5 G, QD
     Route: 048
     Dates: start: 20210715, end: 20211115

REACTIONS (20)
  - Epidermolysis bullosa [Recovering/Resolving]
  - Toxic epidermal necrolysis [Recovering/Resolving]
  - Erythema [Recovering/Resolving]
  - Pruritus [Recovering/Resolving]
  - Oropharyngeal pain [Recovering/Resolving]
  - Pyrexia [Recovering/Resolving]
  - Lip swelling [Recovering/Resolving]
  - Dysphagia [Recovering/Resolving]
  - Eye pain [Recovering/Resolving]
  - Conjunctival oedema [Recovering/Resolving]
  - Scleral hyperaemia [Recovered/Resolved]
  - Mouth ulceration [Recovering/Resolving]
  - Oral mucosa erosion [Recovering/Resolving]
  - Pharyngeal erosion [Recovering/Resolving]
  - Rash papular [Recovering/Resolving]
  - Blister [Recovering/Resolving]
  - Nikolsky^s sign [Recovering/Resolving]
  - Mouth swelling [Recovering/Resolving]
  - Secretion discharge [Recovered/Resolved]
  - Rash [Recovering/Resolving]

NARRATIVE: CASE EVENT DATE: 20211115
